FAERS Safety Report 9632074 (Version 1)
Quarter: 2013Q4

REPORT INFORMATION
  Report Type: Spontaneous
  Country: AU (occurrence: None)
  Receive Date: 20131016
  Receipt Date: 20131016
  Transmission Date: 20140711
  Serious: Yes (Death)
  Sender: FDA-Public Use
  Company Number: AU-2013-3282

PATIENT
  Age: 75 Year
  Sex: Female

DRUGS (6)
  1. VINORELBINE [Suspect]
     Indication: BREAST CANCER METASTATIC
     Dosage: ON DAYS 1 AND 8 OF THE FIRST CYCLE
     Route: 048
  2. VINORELBINE [Suspect]
     Indication: HER-2 POSITIVE BREAST CANCER
     Dosage: ON DAYS 1 AND 8 OF THE FIRST CYCLE
     Route: 048
  3. CAPECITABINE (CAPECITABINE) (CAPECITABINE) [Suspect]
     Indication: BREAST CANCER METASTATIC
     Dosage: DAYS 1 TO 14, EVERY 21 DAYS
     Route: 048
  4. CAPECITABINE (CAPECITABINE) (CAPECITABINE) [Suspect]
     Indication: HER-2 POSITIVE BREAST CANCER
     Dosage: DAYS 1 TO 14, EVERY 21 DAYS
     Route: 048
  5. TRASTUZUMAB [Suspect]
     Indication: BREAST CANCER METASTATIC
     Dosage: 4 MG/KG ON DAY 1 (LOADING DOSE), THEN 2 MG/KG WEEKLY, EVERY 21 DAYS
     Route: 042
  6. TRASTUZUMAB [Suspect]
     Indication: HER-2 POSITIVE BREAST CANCER
     Dosage: 4 MG/KG ON DAY 1 (LOADING DOSE), THEN 2 MG/KG WEEKLY, EVERY 21 DAYS
     Route: 042

REACTIONS (1)
  - Cardiac arrest [None]
